FAERS Safety Report 10901815 (Version 1)
Quarter: 2015Q1

REPORT INFORMATION
  Report Type: Spontaneous
  Country: US (occurrence: None)
  Receive Date: 20150303
  Receipt Date: 20150303
  Transmission Date: 20150721
  Serious: Yes (Other)
  Sender: FDA-Public Use
  Company Number: None

PATIENT
  Age: 20 Year
  Sex: Female
  Weight: 57.15 kg

DRUGS (4)
  1. SUPER B-COMPLEX FOR METABOLISM SUPPORT [Concomitant]
  2. SERTRALINE [Suspect]
     Active Substance: SERTRALINE HYDROCHLORIDE
     Indication: DEPRESSION
     Dosage: 1 PILL
     Route: 048
  3. SERTRALINE [Concomitant]
     Active Substance: SERTRALINE HYDROCHLORIDE
  4. TRI-NESSA BIRTH CONTROL [Concomitant]

REACTIONS (2)
  - Product quality issue [None]
  - Extrasystoles [None]
